FAERS Safety Report 8147067-5 (Version None)
Quarter: 2012Q1

REPORT INFORMATION
  Report Type: 
  Country: None (occurrence: None)
  Receive Date: 20120218
  Receipt Date: 20110203
  Transmission Date: 20120608
  Serious: No
  Sender: FDA-Public Use
  Company Number: US-ALLERGAN-1100209US

PATIENT
  Age: 82 Year
  Sex: Female

DRUGS (5)
  1. INDOCIN [Concomitant]
     Indication: HEADACHE
  2. SYNTHROID [Concomitant]
     Indication: PRODUCT USED FOR UNKNOWN INDICATION
  3. BOTULINUM TOXIN TYPE A [Suspect]
     Indication: DYSKINESIA
     Dosage: UNK
     Route: 030
     Dates: start: 20100517, end: 20100517
  4. CARBAMAZEPINE [Concomitant]
     Indication: PRODUCT USED FOR UNKNOWN INDICATION
  5. VITAMIN B-12 [Concomitant]
     Indication: PRODUCT USED FOR UNKNOWN INDICATION

REACTIONS (3)
  - SPEECH DISORDER [None]
  - MASTICATION DISORDER [None]
  - FACIAL PARESIS [None]
